FAERS Safety Report 5963743-4 (Version None)
Quarter: 2008Q4

REPORT INFORMATION
  Report Type: 
  Country: None (occurrence: None)
  Receive Date: 20081124
  Receipt Date: 20081115
  Transmission Date: 20090506
  Serious: Yes (Death, Hospitalization)
  Sender: FDA-Public Use
  Company Number: US-AVENTIS-200817830US

PATIENT
  Sex: Female

DRUGS (1)
  1. LANTUS [Suspect]
     Dates: start: 20081112, end: 20081112

REACTIONS (2)
  - DEATH [None]
  - INTENTIONAL OVERDOSE [None]
